FAERS Safety Report 5031375-0 (Version None)
Quarter: 2006Q2

REPORT INFORMATION
  Report Type: 
  Country: None (occurrence: None)
  Receive Date: 20060621
  Receipt Date: 20060612
  Transmission Date: 20061013
  Serious: Yes (Other)
  Sender: FDA-Public Use
  Company Number: FI-ROCHE-451364

PATIENT
  Age: 16 Year
  Sex: Male
  Weight: 53 kg

DRUGS (2)
  1. ROACCUTAN [Suspect]
     Indication: ACNE
     Route: 048
     Dates: start: 20050315, end: 20050915
  2. ROACCUTAN [Suspect]
     Route: 048
     Dates: end: 20060315

REACTIONS (1)
  - SKIN STRIAE [None]
